FAERS Safety Report 7244934-1 (Version None)
Quarter: 2011Q1

REPORT INFORMATION
  Report Type: 
  Country: None (occurrence: None)
  Receive Date: 20110126
  Receipt Date: 20110120
  Transmission Date: 20110831
  Serious: Yes (Hospitalization)
  Sender: FDA-Public Use
  Company Number: DE-ELI_LILLY_AND_COMPANY-DE201101005231

PATIENT
  Age: 72 Year
  Sex: Male

DRUGS (2)
  1. BYETTA [Suspect]
     Indication: TYPE 2 DIABETES MELLITUS
     Dosage: 10 UG, 2/D
     Route: 058
     Dates: start: 20100501, end: 20101231
  2. TENORMIN [Concomitant]

REACTIONS (3)
  - PANCREATITIS [None]
  - ABDOMINAL PAIN [None]
  - VOMITING [None]
